FAERS Safety Report 24379379 (Version 1)
Quarter: 2024Q3

REPORT INFORMATION
  Report Type: Spontaneous
  Country: CN (occurrence: CN)
  Receive Date: 20240930
  Receipt Date: 20240930
  Transmission Date: 20241017
  Serious: Yes (Hospitalization)
  Sender: ELI LILLY AND CO
  Company Number: CN-Merck Healthcare KGaA-2024051046

PATIENT
  Age: 62 Year
  Sex: Male

DRUGS (6)
  1. ERBITUX [Suspect]
     Active Substance: CETUXIMAB
     Indication: Laryngeal cancer
     Dosage: 800 MG, UNKNOWN
     Route: 041
     Dates: start: 20240725
  2. ERBITUX [Suspect]
     Active Substance: CETUXIMAB
     Dosage: 800 MG, UNKNOWN
     Route: 041
     Dates: start: 20240816, end: 20240816
  3. PACLITAXEL [Suspect]
     Active Substance: PACLITAXEL
     Indication: Laryngeal cancer
     Dosage: 360 MG, DAILY
     Route: 041
     Dates: start: 20240726, end: 20240726
  4. PACLITAXEL [Suspect]
     Active Substance: PACLITAXEL
     Dosage: 360 MG, DAILY
     Route: 041
     Dates: start: 20240817, end: 20240817
  5. NEDAPLATIN [Suspect]
     Active Substance: NEDAPLATIN
     Indication: Laryngeal cancer
     Dosage: 130 MG, DAILY
     Route: 041
     Dates: start: 20240726, end: 20240726
  6. NEDAPLATIN [Suspect]
     Active Substance: NEDAPLATIN
     Dosage: 130 MG, DAILY
     Route: 041
     Dates: start: 20240818, end: 20240818

REACTIONS (1)
  - Myelosuppression [Recovering/Resolving]

NARRATIVE: CASE EVENT DATE: 20240827
